FAERS Safety Report 6878740-4 (Version None)
Quarter: 2010Q3

REPORT INFORMATION
  Report Type: 
  Country: None (occurrence: None)
  Receive Date: 20100728
  Receipt Date: 20100716
  Transmission Date: 20110219
  Serious: Yes (Other)
  Sender: FDA-Public Use
  Company Number: US-WYE-H16262910

PATIENT
  Sex: Female
  Weight: 110.78 kg

DRUGS (9)
  1. EFFEXOR XR [Suspect]
     Indication: DEPRESSION
     Dosage: UNKNOWN
  2. EFFEXOR XR [Suspect]
     Indication: STRESS
  3. COLCHICINE [Concomitant]
     Indication: GOUT
     Dosage: UNKNOWN
  4. LIPITOR [Concomitant]
     Dosage: UNKNOWN
  5. SYNTHROID [Concomitant]
     Dosage: UNKNOWN
  6. WARFARIN [Concomitant]
     Dosage: UNKNOWN
  7. PRISTIQ [Suspect]
     Indication: DEPRESSION
     Route: 048
     Dates: start: 20100713, end: 20100715
  8. PRISTIQ [Suspect]
     Indication: STRESS
  9. DIGOXIN [Concomitant]
     Dosage: UNKNOWN

REACTIONS (13)
  - ACTIVITIES OF DAILY LIVING IMPAIRED [None]
  - ANXIETY [None]
  - CONSTIPATION [None]
  - DECREASED APPETITE [None]
  - DIARRHOEA [None]
  - DIZZINESS [None]
  - DRUG WITHDRAWAL SYNDROME [None]
  - FEELING ABNORMAL [None]
  - HEADACHE [None]
  - INSOMNIA [None]
  - INTERNATIONAL NORMALISED RATIO INCREASED [None]
  - NONSPECIFIC REACTION [None]
  - TREMOR [None]
